FAERS Safety Report 23419552 (Version 1)
Quarter: 2024Q1

REPORT INFORMATION
  Report Type: Spontaneous
  Country: CN (occurrence: None)
  Receive Date: 20240118
  Receipt Date: 20240118
  Transmission Date: 20240409
  Serious: Yes (Hospitalization)
  Sender: FDA-Public Use
  Company Number: CN-ROCHE-3490046

PATIENT
  Age: 50 Year
  Sex: Female
  Weight: 58 kg

DRUGS (3)
  1. HERCEPTIN [Suspect]
     Active Substance: TRASTUZUMAB
     Indication: Breast cancer
     Dosage: SUBSEQUENT DOSE ON: 26/OCT/2023, 05/DEC/2023
     Route: 041
     Dates: start: 20230911, end: 20231205
  2. DOCETAXEL [Suspect]
     Active Substance: DOCETAXEL\DOCETAXEL ANHYDROUS
     Indication: Breast cancer
     Dosage: SUBSEQUENT DOSE ON: 26/OCT/2023, 05/DEC/2023
     Route: 041
     Dates: start: 20230911, end: 20231205
  3. CARBOPLATIN [Suspect]
     Active Substance: CARBOPLATIN
     Indication: Breast cancer
     Dosage: SUBSEQUENT DOSE ON: 26/OCT/2023, 05/DEC/2023
     Route: 041
     Dates: start: 20230911, end: 20231205

REACTIONS (5)
  - Myelosuppression [Recovering/Resolving]
  - Pyrexia [Recovered/Resolved]
  - Chills [Unknown]
  - Temperature intolerance [Unknown]
  - Pain [Unknown]

NARRATIVE: CASE EVENT DATE: 20231214
